FAERS Safety Report 8340282-7 (Version None)
Quarter: 2012Q2

REPORT INFORMATION
  Report Type: 
  Country: None (occurrence: None)
  Receive Date: 20120507
  Receipt Date: 20120427
  Transmission Date: 20120825
  Serious: Yes (Hospitalization)
  Sender: FDA-Public Use
  Company Number: JP-ASTRAZENECA-2012SE06780

PATIENT
  Age: 21825 Day
  Sex: Male

DRUGS (15)
  1. RINDERON-VG [Concomitant]
     Indication: ECZEMA
     Route: 050
  2. BRONUCK [Concomitant]
     Indication: ANTIINFLAMMATORY THERAPY
     Route: 047
  3. OLMESARTAN MEDOXOMIL [Concomitant]
     Indication: HYPERTENSION
     Route: 048
  4. AZD6140 [Suspect]
     Route: 048
     Dates: start: 20120413
  5. AZD6140 [Suspect]
     Indication: CORONARY ARTERY DISEASE
     Route: 048
     Dates: start: 20111216, end: 20120126
  6. SYMBICORT [Concomitant]
     Indication: ASTHMA
     Route: 055
  7. OLMESARTAN MEDOXOMIL [Concomitant]
     Indication: CARDIOVASCULAR EVENT PROPHYLAXIS
     Route: 048
  8. NIFEDIPINE [Concomitant]
     Indication: CARDIOVASCULAR EVENT PROPHYLAXIS
     Route: 048
     Dates: start: 20111216
  9. BASEN [Concomitant]
     Indication: TYPE 2 DIABETES MELLITUS
     Route: 048
     Dates: end: 20120126
  10. LEVOFLOXACIN [Concomitant]
     Indication: INFECTION PROPHYLAXIS
     Route: 047
  11. ASPIRIN [Suspect]
     Route: 048
     Dates: end: 20120126
  12. NIKORANMART [Concomitant]
     Indication: ANGINA PECTORIS
     Route: 048
  13. BASEN [Concomitant]
     Route: 048
     Dates: start: 20120131
  14. ASPIRIN [Suspect]
     Route: 048
     Dates: start: 20120202
  15. NIFEDIPINE [Concomitant]
     Indication: BLOOD PRESSURE ABNORMAL
     Route: 048
     Dates: start: 20111216

REACTIONS (1)
  - DIVERTICULUM INTESTINAL HAEMORRHAGIC [None]
